FAERS Safety Report 10755849 (Version 1)
Quarter: 2015Q1

REPORT INFORMATION
  Report Type: Spontaneous
  Country: FR (occurrence: FR)
  Receive Date: 20150202
  Receipt Date: 20150202
  Transmission Date: 20150721
  Serious: Yes (Hospitalization)
  Sender: FDA-Public Use
  Company Number: FR-PFIZER INC-2015038136

PATIENT
  Age: 55 Year
  Sex: Male

DRUGS (19)
  1. ROCEPHINE [Concomitant]
     Active Substance: CEFTRIAXONE SODIUM
     Dosage: 2 G, 1X/DAY
     Route: 042
     Dates: start: 20110718, end: 20110718
  2. UMULINE [Concomitant]
     Active Substance: INSULIN HUMAN
     Dosage: UNK
     Route: 042
     Dates: start: 20110718
  3. PROGRAF [Concomitant]
     Active Substance: TACROLIMUS\TACROLIMUS ANHYDROUS
     Dosage: 1 MG, 2X/DAY
     Route: 048
     Dates: start: 20110719
  4. TORENTAL [Concomitant]
     Dosage: 400 MG, 2X/DAY
     Route: 048
     Dates: start: 20110716
  5. ATARAX [Concomitant]
     Active Substance: HYDROXYZINE\HYDROXYZINE HYDROCHLORIDE
     Dosage: 100 MG, 1X/DAY
     Route: 048
     Dates: start: 20110718, end: 20110718
  6. ROVALCYTE [Concomitant]
     Active Substance: VALGANCICLOVIR HYDROCHLORIDE
     Dosage: 450 MG, 2X/DAY
     Route: 048
     Dates: start: 20110719
  7. THYMOGLOBULINE [Concomitant]
     Active Substance: LAPINE T-LYMPHOCYTE IMMUNE GLOBULIN
     Dosage: 1 DF, 1X/DAY
     Route: 051
     Dates: start: 20110716
  8. CELLCEPT [Concomitant]
     Active Substance: MYCOPHENOLATE MOFETIL\MYCOPHENOLATE MOFETIL HYDROCHLORIDE
     Dosage: 1000 MG, 2X/DAY
     Route: 048
     Dates: start: 20110717
  9. ENBREL [Concomitant]
     Active Substance: ETANERCEPT
     Dosage: 50 MG, 1X/DAY
     Route: 051
     Dates: start: 20110718, end: 20110718
  10. BACTRIM [Concomitant]
     Active Substance: SULFAMETHOXAZOLE\TRIMETHOPRIM
     Dosage: UNK
     Route: 048
     Dates: start: 20110719
  11. XANAX [Concomitant]
     Active Substance: ALPRAZOLAM
     Dosage: 0.50 MG, 1X/DAY
     Route: 048
     Dates: start: 20110718, end: 20110718
  12. SOLU-MEDROL [Suspect]
     Active Substance: METHYLPREDNISOLONE SODIUM SUCCINATE
     Dosage: 2 MG/KG, 1X/DAY
     Route: 051
     Dates: start: 20110716, end: 20110716
  13. HUMALOG [Concomitant]
     Active Substance: INSULIN LISPRO
     Route: 048
  14. ATROPINE [Concomitant]
     Active Substance: ATROPINE
     Dosage: 0.5 MG, 1X/DAY
     Route: 058
     Dates: start: 20110718, end: 20110718
  15. APROVEL [Concomitant]
     Active Substance: IRBESARTAN
     Route: 048
  16. PERFALGAN [Concomitant]
     Active Substance: ACETAMINOPHEN
     Dosage: UNK
     Dates: start: 20110717
  17. MORPHINE [Concomitant]
     Active Substance: MORPHINE
     Dosage: 10 MG, 1X/DAY
     Route: 058
     Dates: start: 20110718, end: 20110718
  18. KARDEGIC [Concomitant]
     Active Substance: ASPIRIN LYSINE
     Route: 048
  19. HEPARIN SODIUM. [Concomitant]
     Active Substance: HEPARIN SODIUM
     Dosage: UNK
     Route: 042
     Dates: start: 20110718

REACTIONS (1)
  - Atrial fibrillation [Recovered/Resolved]

NARRATIVE: CASE EVENT DATE: 20110719
